FAERS Safety Report 4974289-4 (Version None)
Quarter: 2006Q2

REPORT INFORMATION
  Report Type: 
  Country: None (occurrence: None)
  Receive Date: 20060417
  Receipt Date: 20060310
  Transmission Date: 20061013
  Serious: Yes (Hospitalization)
  Sender: FDA-Public Use
  Company Number: FR-AVENTIS-200610947FR

PATIENT
  Sex: Female

DRUGS (7)
  1. KETEK [Suspect]
     Indication: BRONCHITIS
     Route: 048
     Dates: start: 20060101
  2. SUSTIVA [Concomitant]
     Indication: ACQUIRED IMMUNODEFICIENCY SYNDROME
     Route: 048
     Dates: end: 20060208
  3. KALETRA [Concomitant]
     Indication: ACQUIRED IMMUNODEFICIENCY SYNDROME
     Route: 048
     Dates: end: 20060208
  4. VIREAD [Concomitant]
     Indication: ACQUIRED IMMUNODEFICIENCY SYNDROME
     Route: 048
     Dates: end: 20060208
  5. PYOSTACINE [Concomitant]
     Indication: HERPES SIMPLEX
     Route: 048
     Dates: start: 20051201
  6. TAVANIC [Concomitant]
     Indication: HERPES SIMPLEX
     Dates: start: 20051201
  7. ZELITREX [Concomitant]
     Indication: HERPES SIMPLEX
     Route: 048
     Dates: start: 20051201

REACTIONS (10)
  - ASTHENIA [None]
  - BLOOD POTASSIUM DECREASED [None]
  - DEHYDRATION [None]
  - DYSGEUSIA [None]
  - FOOD INTOLERANCE [None]
  - GAMMA-GLUTAMYLTRANSFERASE INCREASED [None]
  - NAUSEA [None]
  - PALLOR [None]
  - RENAL FAILURE ACUTE [None]
  - TONGUE DRY [None]
